FAERS Safety Report 18411211 (Version 1)
Quarter: 2020Q4

REPORT INFORMATION
  Report Type: Spontaneous
  Country: US (occurrence: US)
  Receive Date: 20201021
  Receipt Date: 20201021
  Transmission Date: 20210114
  Serious: Yes (Hospitalization, Other)
  Sender: FDA-Public Use
  Company Number: US-PURDUE-USA-2020-0170832

PATIENT
  Sex: Male

DRUGS (1)
  1. OXYCONTIN [Suspect]
     Active Substance: OXYCODONE HYDROCHLORIDE
     Indication: PAIN
     Dosage: 320 MG, DAILY
     Route: 048
     Dates: start: 1998, end: 2009

REACTIONS (7)
  - Drug dependence [Unknown]
  - Mental impairment [Unknown]
  - Hernia [Unknown]
  - Localised infection [Unknown]
  - Leg amputation [Unknown]
  - Hepatitis C [Recovered/Resolved]
  - Liver injury [Unknown]

NARRATIVE: CASE EVENT DATE: 2010
